APPROVED DRUG PRODUCT: AMOXAPINE
Active Ingredient: AMOXAPINE
Strength: 50MG
Dosage Form/Route: TABLET;ORAL
Application: A072691 | Product #003 | TE Code: AB
Applicant: WATSON LABORATORIES INC
Approved: Aug 28, 1992 | RLD: No | RS: No | Type: RX